FAERS Safety Report 8866498 (Version 2)
Quarter: 2014Q3

REPORT INFORMATION
  Report Type: Report from Study
  Country: US (occurrence: US)
  Receive Date: 20121025
  Receipt Date: 20140825
  Transmission Date: 20150326
  Serious: Yes (Death, Other)
  Sender: FDA-Public Use
  Company Number: US-ROCHE-1131521

PATIENT
  Sex: Male
  Weight: 117.93 kg

DRUGS (4)
  1. VP-16 [Concomitant]
     Active Substance: ETOPOSIDE
     Route: 048
  2. CHLORAMBUCIL [Concomitant]
     Active Substance: CHLORAMBUCIL
  3. GEMCITABINE [Concomitant]
     Active Substance: GEMCITABINE\GEMCITABINE HYDROCHLORIDE
  4. RITUXAN [Suspect]
     Active Substance: RITUXIMAB
     Indication: HODGKIN^S DISEASE
     Route: 042
     Dates: start: 20040721, end: 20040811

REACTIONS (10)
  - Asthenia [Unknown]
  - Depression [Unknown]
  - Neuropathy peripheral [Unknown]
  - Blood culture positive [Unknown]
  - Cough [Unknown]
  - Constipation [Unknown]
  - Pyrexia [Unknown]
  - Off label use [Unknown]
  - Cardiac arrest [Fatal]
  - Dyspnoea [Unknown]
